FAERS Safety Report 10989974 (Version 4)
Quarter: 2015Q2

REPORT INFORMATION
  Report Type: Spontaneous
  Country: JP (occurrence: JP)
  Receive Date: 20150406
  Receipt Date: 20150608
  Transmission Date: 20150821
  Serious: Yes (Hospitalization, Disabling)
  Sender: FDA-Public Use
  Company Number: JP-ROCHE-1560735

PATIENT
  Age: 53 Year
  Sex: Female
  Weight: 56 kg

DRUGS (6)
  1. AMLODIPINE [Concomitant]
     Active Substance: AMLODIPINE BESYLATE
     Route: 065
     Dates: start: 20141224
  2. ZETIA [Concomitant]
     Active Substance: EZETIMIBE
     Route: 065
     Dates: start: 20130719
  3. APIDRA [Concomitant]
     Active Substance: INSULIN GLULISINE
     Route: 065
     Dates: start: 20130704
  4. PREMINENT [Concomitant]
     Active Substance: HYDROCHLOROTHIAZIDE\LOSARTAN POTASSIUM
     Route: 065
     Dates: start: 20140515
  5. NOVORAPID [Concomitant]
     Active Substance: INSULIN ASPART
     Route: 065
     Dates: start: 20130705
  6. LUCENTIS [Suspect]
     Active Substance: RANIBIZUMAB
     Indication: DIABETIC RETINAL OEDEMA
     Route: 031
     Dates: start: 20150318, end: 20150318

REACTIONS (1)
  - Cerebral infarction [Recovered/Resolved]

NARRATIVE: CASE EVENT DATE: 20150318
